FAERS Safety Report 13676837 (Version 1)
Quarter: 2017Q2

REPORT INFORMATION
  Report Type: Spontaneous
  Country: FR (occurrence: FR)
  Receive Date: 20170622
  Receipt Date: 20170622
  Transmission Date: 20170830
  Serious: Yes (Other)
  Sender: FDA-Public Use
  Company Number: FR-ACCORD-052866

PATIENT
  Age: 46 Year
  Sex: Female

DRUGS (6)
  1. GEMCITABINE ACCORD [Concomitant]
     Active Substance: GEMCITABINE HYDROCHLORIDE
  2. ONDANSETRON ACCORD [Concomitant]
     Active Substance: ONDANSETRON
     Indication: PREMEDICATION
     Dosage: 2 MG/ML,SOLUTION INJECTABLE
  3. EMEND [Concomitant]
     Active Substance: APREPITANT
     Indication: PREMEDICATION
     Dosage: 125 MG
     Dates: start: 20170301
  4. PRIMPERAN [Concomitant]
     Active Substance: METOCLOPRAMIDE HYDROCHLORIDE
     Indication: PREMEDICATION
     Route: 048
  5. CARBOPLATIN ACCORD [Suspect]
     Active Substance: CARBOPLATIN
     Indication: BREAST CANCER METASTATIC
     Dosage: 10 MG/ML
     Route: 042
     Dates: start: 20170301, end: 20170414
  6. METHYLPREDNISOLONE MYLAN [Concomitant]
     Active Substance: METHYLPREDNISOLONE
     Indication: PREMEDICATION

REACTIONS (2)
  - Condition aggravated [Recovering/Resolving]
  - Cholestasis [Recovering/Resolving]

NARRATIVE: CASE EVENT DATE: 20170310
